FAERS Safety Report 9849798 (Version 1)
Quarter: 2014Q1

REPORT INFORMATION
  Report Type: Spontaneous
  Country: US (occurrence: US)
  Receive Date: 20140128
  Receipt Date: 20140128
  Transmission Date: 20141002
  Serious: No
  Sender: FDA-Public Use
  Company Number: US-BAXTER-2014BAX003785

PATIENT
  Sex: Male

DRUGS (2)
  1. EXTRANEAL [Suspect]
     Indication: PERITONEAL DIALYSIS
     Route: 033
  2. DIANEAL LOW CALCIUM [Concomitant]
     Indication: PERITONEAL DIALYSIS
     Route: 033

REACTIONS (3)
  - Drug administration error [Unknown]
  - Peritoneal dialysis complication [Unknown]
  - No adverse event [Recovered/Resolved]
